FAERS Safety Report 5347890-6 (Version None)
Quarter: 2007Q2

REPORT INFORMATION
  Report Type: 
  Country: None (occurrence: None)
  Receive Date: 20070514
  Receipt Date: 20060810
  Transmission Date: 20071010
  Serious: No
  Sender: FDA-Public Use
  Company Number: AE-806-259

PATIENT
  Age: 86 Year
  Sex: Female

DRUGS (1)
  1. LIDODERM [Suspect]

REACTIONS (3)
  - APPLICATION SITE RASH [None]
  - HYPOTENSION [None]
  - SYNCOPE [None]
